FAERS Safety Report 5156451-3 (Version None)
Quarter: 2006Q4

REPORT INFORMATION
  Report Type: 
  Country: None (occurrence: None)
  Receive Date: 20061113
  Receipt Date: 20061030
  Transmission Date: 20070319
  Serious: Yes (Other)
  Sender: FDA-Public Use
  Company Number: 2006134873

PATIENT
  Age: 58 Year
  Sex: Male
  Weight: 88.4514 kg

DRUGS (6)
  1. CHANTIX [Suspect]
     Indication: SMOKING CESSATION THERAPY
     Dosage: 0.5 MG (0.5 MG, 1 IN 1 D)
     Dates: start: 20061021
  2. KALETRA [Concomitant]
  3. EPIVIR [Concomitant]
  4. VIREAD [Concomitant]
  5. ANDROGEL [Concomitant]
  6. DIAZEPAM [Concomitant]

REACTIONS (2)
  - ANOREXIA [None]
  - DISORIENTATION [None]
